FAERS Safety Report 9938667 (Version 1)
Quarter: 2014Q1

REPORT INFORMATION
  Report Type: Spontaneous
  Country: US (occurrence: US)
  Receive Date: 20140303
  Receipt Date: 20140303
  Transmission Date: 20141002
  Serious: Yes (Hospitalization, Other)
  Sender: FDA-Public Use
  Company Number: US-SA-2014SA024666

PATIENT
  Age: 60 Year
  Sex: Female

DRUGS (3)
  1. LANTUS [Suspect]
     Indication: TYPE 2 DIABETES MELLITUS
     Dosage: DOSE:28 UNIT(S)
     Route: 051
  2. MUSCLE RELAXANTS [Suspect]
     Route: 065
  3. GLUCOPHAGE [Suspect]
     Route: 065

REACTIONS (12)
  - Hernia [Unknown]
  - Wound infection [Unknown]
  - Hypoglycaemia [Unknown]
  - Loss of consciousness [Unknown]
  - Adverse event [Unknown]
  - Overdose [Unknown]
  - Asthenia [Unknown]
  - Somnolence [Unknown]
  - Confusional state [Recovered/Resolved]
  - Blood magnesium decreased [Unknown]
  - Vitamin D decreased [Unknown]
  - Pain [Unknown]
